FAERS Safety Report 18747558 (Version 9)
Quarter: 2021Q2

REPORT INFORMATION
  Report Type: Report from Study
  Country: IL (occurrence: IL)
  Receive Date: 20210115
  Receipt Date: 20210602
  Transmission Date: 20210717
  Serious: Yes (Death, Hospitalization)
  Sender: FDA-Public Use
  Company Number: IL-ROCHE-2746959

PATIENT
  Age: 77 Year
  Sex: Female
  Weight: 73.7 kg

DRUGS (18)
  1. BEVACIZUMAB. [Suspect]
     Active Substance: BEVACIZUMAB
     Indication: HEPATOCELLULAR CARCINOMA
     Dosage: MOS RECENT DOSE ON 15/DEC/2020
     Route: 042
     Dates: start: 20201125
  2. CETOMACROGOL [Concomitant]
     Active Substance: COSMETICS
     Indication: LIPOMA
     Route: 061
  3. FUSID (ISRAEL) [Concomitant]
     Indication: HYPERTENSION
     Route: 048
     Dates: start: 20201214, end: 20201217
  4. PREDNISONE. [Concomitant]
     Active Substance: PREDNISONE
     Dosage: START DATE: 15?JAN?2021
     Route: 048
  5. FUSID (ISRAEL) [Concomitant]
     Route: 048
     Dates: start: 20201214, end: 20201215
  6. PREDNISONE. [Concomitant]
     Active Substance: PREDNISONE
     Dosage: END DATE: 14/JAN/2021
     Route: 048
     Dates: start: 20210113
  7. LOSARDEX [Concomitant]
     Active Substance: LOSARTAN POTASSIUM
     Indication: HYPERTENSION
     Route: 048
     Dates: start: 202012
  8. PREDNISONE. [Concomitant]
     Active Substance: PREDNISONE
     Dosage: END DATE: 14/JAN/2021
     Route: 048
     Dates: start: 20210115, end: 20210124
  9. PROPANOLOL [Concomitant]
     Active Substance: PROPRANOLOL HYDROCHLORIDE
     Indication: HYPERTENSION
     Route: 048
     Dates: start: 201505
  10. ATEZOLIZUMAB. [Suspect]
     Active Substance: ATEZOLIZUMAB
     Indication: HEPATOCELLULAR CARCINOMA
     Dosage: MOS RECENT DOSE ON 15/DEC/2020
     Route: 041
     Dates: start: 20201125
  11. TIRAGOLUMAB. [Suspect]
     Active Substance: TIRAGOLUMAB
     Indication: HEPATOCELLULAR CARCINOMA
     Dosage: MOS RECENT DOSE ON 15/DEC/2020
     Route: 042
     Dates: start: 20201125
  12. NEXIUM [Concomitant]
     Active Substance: ESOMEPRAZOLE MAGNESIUM
     Indication: PROPHYLAXIS
     Route: 048
     Dates: start: 202010
  13. LOSARDEX [Concomitant]
     Active Substance: LOSARTAN POTASSIUM
     Route: 048
     Dates: start: 20210113, end: 20210116
  14. ACAMOLI [Concomitant]
     Indication: PAIN
     Route: 048
  15. PREDNISONE. [Concomitant]
     Active Substance: PREDNISONE
     Route: 048
     Dates: start: 20210105, end: 20210109
  16. PREDNISONE. [Concomitant]
     Active Substance: PREDNISONE
     Indication: HEPATIC ENZYME INCREASED
     Route: 048
     Dates: start: 20210111, end: 20210112
  17. ALDACTONE [Concomitant]
     Active Substance: SPIRONOLACTONE
     Indication: HYPERTENSION
     Route: 048
     Dates: start: 202010
  18. AMLODIPINE [Concomitant]
     Active Substance: AMLODIPINE BESYLATE
     Route: 048
     Dates: start: 20210111, end: 20210117

REACTIONS (1)
  - Encephalopathy [Recovered/Resolved with Sequelae]

NARRATIVE: CASE EVENT DATE: 20210110
